FAERS Safety Report 6496601-X (Version None)
Quarter: 2009Q4

REPORT INFORMATION
  Report Type: 
  Country: None (occurrence: None)
  Receive Date: 20091125
  Receipt Date: 20081023
  Transmission Date: 20100525
  Serious: Yes (Hospitalization)
  Sender: FDA-Public Use
  Company Number: 2008BH011429

PATIENT
  Age: 53 Year
  Sex: Female

DRUGS (3)
  1. DIANEAL [Suspect]
     Indication: PERITONEAL DIALYSIS
     Dosage: 10 L;EVERY DAY; IP
     Route: 033
     Dates: start: 20031101, end: 20080801
  2. EXTRANEAL [Suspect]
     Indication: PERITONEAL DIALYSIS
     Dosage: 2.5 L; EVERY DAY; IP
     Route: 033
     Dates: start: 20031101, end: 20080802
  3. EXTRANEAL [Suspect]
     Indication: PERITONEAL DIALYSIS
     Dosage: 2.5 L; EVERY DAY; IP
     Route: 033
     Dates: start: 20031101, end: 20080802

REACTIONS (1)
  - DEVICE RELATED INFECTION [None]
